FAERS Safety Report 6585792-8 (Version None)
Quarter: 2010Q1

REPORT INFORMATION
  Report Type: 
  Country: None (occurrence: None)
  Receive Date: 20100204
  Receipt Date: 20100121
  Transmission Date: 20100710
  Serious: Yes (Other)
  Sender: FDA-Public Use
  Company Number: 2010S1000359

PATIENT
  Age: 57 Year
  Sex: Male

DRUGS (1)
  1. PHOSPHOSODA FLAVOR NOT SPECIFIED [Suspect]
     Indication: COLONOSCOPY
     Dosage: ; PO
     Route: 048

REACTIONS (3)
  - HAEMODIALYSIS [None]
  - RENAL DISORDER [None]
  - RENAL TRANSPLANT [None]
